FAERS Safety Report 14131217 (Version 2)
Quarter: 2018Q1

REPORT INFORMATION
  Report Type: Report from Study
  Country: US (occurrence: US)
  Receive Date: 20171026
  Receipt Date: 20180123
  Transmission Date: 20180508
  Serious: No
  Sender: FDA-Public Use
  Company Number: US-AMGEN-USASL2017152149

PATIENT
  Sex: Male

DRUGS (1)
  1. REPATHA [Suspect]
     Active Substance: EVOLOCUMAB
     Indication: HYPERCHOLESTEROLAEMIA
     Dosage: 140 MG/ML, Q2WK(1ML (140MG) EVERY 2 WEEKS)
     Route: 065

REACTIONS (6)
  - Burning sensation [Unknown]
  - Myalgia [Unknown]
  - Back pain [Unknown]
  - Feeling cold [Unknown]
  - Dyspnoea [Unknown]
  - Diarrhoea [Unknown]
